FAERS Safety Report 5284253-6 (Version None)
Quarter: 2007Q2

REPORT INFORMATION
  Report Type: 
  Country: None (occurrence: None)
  Receive Date: 20070403
  Receipt Date: 20070327
  Transmission Date: 20071010
  Serious: Yes (Death, Hospitalization)
  Sender: FDA-Public Use
  Company Number: PHEH2007US03137

PATIENT
  Age: 84 Year
  Sex: Male

DRUGS (6)
  1. EXJADE [Suspect]
     Indication: ANAEMIA
     Dosage: 250 MG, QD
     Route: 048
     Dates: start: 20060807, end: 20070311
  2. LANOXIN [Concomitant]
     Dosage: 0.125 MG, QD
     Route: 048
     Dates: end: 20070311
  3. DIURIL [Concomitant]
     Dosage: 25 MG, QD
  4. GLUCOTROL [Concomitant]
     Dosage: 10 MG, UNK
  5. ZOLOFT [Concomitant]
     Dosage: 100 MG, QD
  6. ATIVAN [Concomitant]
     Dosage: 0.5 QHS, PRN

REACTIONS (4)
  - ARTERIAL THROMBOSIS LIMB [None]
  - ENDARTERECTOMY [None]
  - ILIAC ARTERY THROMBOSIS [None]
  - THROMBOLYSIS [None]
